FAERS Safety Report 6057733-3 (Version None)
Quarter: 2009Q1

REPORT INFORMATION
  Report Type: 
  Country: None (occurrence: None)
  Receive Date: 20090129
  Receipt Date: 20090120
  Transmission Date: 20090719
  Serious: Yes (Hospitalization)
  Sender: FDA-Public Use
  Company Number: DE-ASTRAZENECA-2009PK00427

PATIENT
  Age: 79 Year
  Sex: Female

DRUGS (29)
  1. SEROQUEL [Suspect]
     Indication: DEPRESSION
     Route: 048
     Dates: start: 20050905, end: 20050909
  2. SEROQUEL [Suspect]
     Route: 048
     Dates: start: 20050910, end: 20050916
  3. SEROQUEL [Suspect]
     Route: 048
     Dates: start: 20050917, end: 20050921
  4. SEROQUEL [Suspect]
     Route: 048
     Dates: start: 20050922, end: 20051026
  5. SEROQUEL [Suspect]
     Route: 048
     Dates: start: 20051027, end: 20051103
  6. SEROQUEL [Suspect]
     Route: 048
     Dates: start: 20051104, end: 20051108
  7. SEROQUEL [Suspect]
     Route: 048
     Dates: start: 20051109, end: 20051121
  8. NEXIUM [Suspect]
     Route: 048
     Dates: start: 20050701
  9. CYMBALTA [Suspect]
     Route: 048
     Dates: start: 20051018, end: 20051019
  10. CYMBALTA [Suspect]
     Route: 048
     Dates: start: 20051020, end: 20051102
  11. CYMBALTA [Suspect]
     Route: 048
     Dates: start: 20051103, end: 20051110
  12. CYMBALTA [Suspect]
     Route: 048
     Dates: start: 20051111, end: 20051118
  13. MELPERON [Suspect]
     Route: 048
     Dates: start: 20050921, end: 20051120
  14. MELPERON [Suspect]
     Route: 048
     Dates: start: 20051121, end: 20051122
  15. DELIX PLUS [Suspect]
     Route: 048
     Dates: start: 20051026, end: 20051122
  16. DELIX [Suspect]
     Route: 048
     Dates: start: 20051026, end: 20051101
  17. DELIX [Suspect]
     Route: 048
     Dates: start: 20051108, end: 20051118
  18. DELIX [Suspect]
     Route: 048
     Dates: start: 20051124
  19. TOREM [Suspect]
     Route: 048
     Dates: start: 20051026, end: 20051118
  20. TAVOR [Concomitant]
     Route: 048
     Dates: start: 20050914, end: 20051001
  21. TAVOR [Concomitant]
     Route: 048
     Dates: start: 20051002, end: 20051128
  22. TAVOR [Concomitant]
     Route: 048
     Dates: start: 20051029, end: 20051102
  23. TAVOR [Concomitant]
     Route: 048
     Dates: start: 20051103, end: 20051108
  24. TAVOR [Concomitant]
     Route: 048
     Dates: start: 20051109, end: 20051112
  25. TAVOR [Concomitant]
     Route: 048
     Dates: start: 20051113, end: 20051123
  26. BISOPROLOL [Concomitant]
     Route: 048
     Dates: end: 20051107
  27. BISOPROLOL [Concomitant]
     Route: 048
     Dates: start: 20051108
  28. GODAMED [Concomitant]
     Route: 048
  29. ISCOVER [Concomitant]
     Route: 048

REACTIONS (4)
  - FALL [None]
  - HYPOCHLORAEMIA [None]
  - HYPOKALAEMIA [None]
  - HYPONATRAEMIA [None]
